FAERS Safety Report 4582494-4 (Version None)
Quarter: 2005Q1

REPORT INFORMATION
  Report Type: 
  Country: None (occurrence: None)
  Receive Date: 20050211
  Receipt Date: 20050211
  Transmission Date: 20050727
  Serious: Yes (Hospitalization)
  Sender: FDA-Public Use
  Company Number: None

PATIENT
  Sex: Female
  Weight: 60.782 kg

DRUGS (1)
  1. NAMENDA [Suspect]
     Indication: DEMENTIA
     Dosage: 1 BID ORAL
     Route: 048
     Dates: start: 20050126, end: 20050205

REACTIONS (1)
  - RENAL FAILURE ACUTE [None]
